FAERS Safety Report 15497176 (Version 1)
Quarter: 2018Q4

REPORT INFORMATION
  Report Type: Report from Study
  Country: US (occurrence: US)
  Receive Date: 20181015
  Receipt Date: 20181015
  Transmission Date: 20190205
  Serious: Yes (Other)
  Sender: FDA-Public Use
  Company Number: US-ASTELLAS-2018US043000

PATIENT
  Sex: Female

DRUGS (2)
  1. MIRABEGRON [Suspect]
     Active Substance: MIRABEGRON
     Indication: PRODUCT USED FOR UNKNOWN INDICATION
     Route: 048
     Dates: start: 20171103
  2. MIRABEGRON [Suspect]
     Active Substance: MIRABEGRON
     Route: 048
     Dates: end: 201809

REACTIONS (2)
  - Pruritus generalised [Recovered/Resolved]
  - Rash [Unknown]
